FAERS Safety Report 9142761 (Version 1)
Quarter: 2013Q1

REPORT INFORMATION
  Report Type: Spontaneous
  Country: NL (occurrence: NL)
  Receive Date: 20130306
  Receipt Date: 20130306
  Transmission Date: 20140127
  Serious: Yes (Death)
  Sender: FDA-Public Use
  Company Number: NL-BAYER-2013-027884

PATIENT
  Age: 17 Year
  Sex: Female

DRUGS (1)
  1. YASMIN [Suspect]
     Indication: ACNE
     Dosage: UNK
     Route: 048

REACTIONS (1)
  - Thrombosis [Fatal]
